FAERS Safety Report 23340624 (Version 2)
Quarter: 2025Q1

REPORT INFORMATION
  Report Type: Spontaneous
  Country: DE (occurrence: DE)
  Receive Date: 20231227
  Receipt Date: 20250129
  Transmission Date: 20250408
  Serious: Yes (Life-Threatening, Other)
  Sender: TEVA
  Company Number: DE-TEVA-VS-3137649

PATIENT
  Sex: Male

DRUGS (1)
  1. ALLOPURINOL [Suspect]
     Active Substance: ALLOPURINOL
     Indication: Blood uric acid abnormal
     Route: 065

REACTIONS (7)
  - Near death experience [Unknown]
  - Dyspnoea [Unknown]
  - Foreign body in throat [Unknown]
  - Loss of consciousness [Unknown]
  - Product solubility abnormal [Unknown]
  - Retching [Unknown]
  - Asphyxia [Unknown]
